FAERS Safety Report 4654211-0 (Version None)
Quarter: 2005Q2

REPORT INFORMATION
  Report Type: 
  Country: None (occurrence: None)
  Receive Date: 20050504
  Receipt Date: 20050426
  Transmission Date: 20051028
  Serious: Yes (Other)
  Sender: FDA-Public Use
  Company Number: TPA2004A01319

PATIENT
  Age: 57 Year
  Sex: Male
  Weight: 86.3 kg

DRUGS (3)
  1. PIOGLITAZONE HYDROCHLORIDE (PIOGLITAZONE HYDROCHLORIDE) (30 MILLIGRAMS [Suspect]
     Indication: DIABETES MELLITUS
     Dosage: 30 MG QAM PER ORAL
     Route: 048
     Dates: start: 20040722, end: 20040825
  2. PIOGLITAZONE HYDROCHLORIDE (PIOGLITAZONE HYDROCHLORIDE) (30 MILLIGRAMS [Suspect]
     Indication: PROPHYLAXIS
     Dosage: 30 MG QAM PER ORAL
     Route: 048
     Dates: start: 20040722, end: 20040825
  3. LISINOPRIL [Suspect]
     Dosage: 40 MG 1 IN 1 D
     Dates: start: 20040601

REACTIONS (6)
  - ALCOHOL USE [None]
  - ANXIETY [None]
  - DYSPEPSIA [None]
  - HYPERTENSION [None]
  - PALPITATIONS [None]
  - TREMOR [None]
